FAERS Safety Report 20408862 (Version 4)
Quarter: 2025Q2

REPORT INFORMATION
  Report Type: Report from Study
  Country: IT (occurrence: IT)
  Receive Date: 20220201
  Receipt Date: 20250603
  Transmission Date: 20250717
  Serious: Yes (Hospitalization, Other)
  Sender: AUROBINDO
  Company Number: IT-002147023-NVSC2021IT172784

PATIENT
  Age: 71 Year
  Sex: Female

DRUGS (1)
  1. OLMESARTAN [Suspect]
     Active Substance: OLMESARTAN
     Indication: Hypertension
     Route: 065

REACTIONS (6)
  - Gastrointestinal disorder [Recovering/Resolving]
  - Cryptitis [Recovering/Resolving]
  - Intestinal villi atrophy [Recovering/Resolving]
  - Malabsorption [Recovering/Resolving]
  - Sprue-like enteropathy [Recovering/Resolving]
  - Microvillous inclusion disease [Recovering/Resolving]
